FAERS Safety Report 9631449 (Version 2)
Quarter: 2013Q4

REPORT INFORMATION
  Report Type: Spontaneous
  Country: DK (occurrence: AU)
  Receive Date: 20131018
  Receipt Date: 20131113
  Transmission Date: 20140711
  Serious: Yes (Other)
  Sender: FDA-Public Use
  Company Number: AU-FRI-1000050227

PATIENT
  Sex: Female
  Weight: 64 kg

DRUGS (6)
  1. CITALOPRAM [Suspect]
     Indication: PRODUCT USED FOR UNKNOWN INDICATION
     Dosage: 20 MG
     Route: 048
  2. VALPROATE SODIUM [Suspect]
     Indication: PRODUCT USED FOR UNKNOWN INDICATION
  3. EPILIM [Suspect]
     Indication: EPILEPSY
     Dosage: 200 MG
     Route: 048
  4. LAMICTAL [Suspect]
     Indication: EPILEPSY
     Dosage: 200 MG
  5. LAMICTAL [Suspect]
     Indication: EPILEPSY
  6. TOPAMAX [Suspect]
     Indication: EPILEPSY
     Dosage: 200 MG

REACTIONS (7)
  - Epilepsy [Unknown]
  - Muscle twitching [Unknown]
  - Tetany [Unknown]
  - Vision blurred [Unknown]
  - Agitation [Unknown]
  - Disturbance in attention [Unknown]
  - Headache [Unknown]
